FAERS Safety Report 16820361 (Version 6)
Quarter: 2020Q2

REPORT INFORMATION
  Report Type: Report from Study
  Country: None (occurrence: AR)
  Receive Date: 20190918
  Receipt Date: 20200530
  Transmission Date: 20200713
  Serious: Yes (Hospitalization, Other)
  Sender: FDA-Public Use
  Company Number: AR-ABBVIE-19K-007-2927273-00

PATIENT
  Age: 51 Year
  Sex: Female

DRUGS (2)
  1. ARCOXIA [Concomitant]
     Active Substance: ETORICOXIB
     Indication: PRODUCT USED FOR UNKNOWN INDICATION
     Dates: start: 201910, end: 20191110
  2. HUMIRA [Suspect]
     Active Substance: ADALIMUMAB
     Indication: RHEUMATOID ARTHRITIS
     Route: 058
     Dates: start: 20170914, end: 201910

REACTIONS (26)
  - Head discomfort [Not Recovered/Not Resolved]
  - Joint range of motion decreased [Unknown]
  - White blood cells urine positive [Unknown]
  - Procedural haemorrhage [Recovering/Resolving]
  - Facial pain [Unknown]
  - Anxiety [Not Recovered/Not Resolved]
  - Discomfort [Unknown]
  - Scab [Not Recovered/Not Resolved]
  - Accident [Unknown]
  - Gastritis [Recovering/Resolving]
  - Osteoma [Unknown]
  - Swelling [Unknown]
  - Arthritis [Not Recovered/Not Resolved]
  - Investigation abnormal [Not Recovered/Not Resolved]
  - Rheumatoid arthritis [Not Recovered/Not Resolved]
  - Depression [Recovering/Resolving]
  - Neoplasm [Not Recovered/Not Resolved]
  - Hypoaesthesia [Unknown]
  - Contusion [Recovering/Resolving]
  - Skin discolouration [Unknown]
  - Dermal cyst [Unknown]
  - Paraesthesia oral [Unknown]
  - Depressed mood [Recovered/Resolved]
  - Haematoma [Unknown]
  - Oedema [Unknown]
  - Bacterial test [Unknown]

NARRATIVE: CASE EVENT DATE: 201906
